FAERS Safety Report 9384533 (Version 2)
Quarter: 2013Q3

REPORT INFORMATION
  Report Type: Spontaneous
  Country: US (occurrence: US)
  Receive Date: 20130705
  Receipt Date: 20130731
  Transmission Date: 20140515
  Serious: Yes (Other)
  Sender: FDA-Public Use
  Company Number: US-BAYER-2013-078886

PATIENT
  Sex: Female

DRUGS (1)
  1. STIVARGA [Suspect]
     Dosage: 160 MG, QD
     Route: 048
     Dates: start: 201211, end: 201302

REACTIONS (2)
  - Drug ineffective [None]
  - Decreased appetite [None]
